FAERS Safety Report 6593629-6 (Version None)
Quarter: 2010Q1

REPORT INFORMATION
  Report Type: 
  Country: None (occurrence: None)
  Receive Date: 20100222
  Receipt Date: 20090917
  Transmission Date: 20100710
  Serious: Yes (Other)
  Sender: FDA-Public Use
  Company Number: US-BRISTOL-MYERS SQUIBB COMPANY-14779144

PATIENT
  Age: 42 Year
  Sex: Female
  Weight: 68 kg

DRUGS (3)
  1. ORENCIA [Suspect]
     Indication: RHEUMATOID ARTHRITIS
     Dates: start: 20090301, end: 20090501
  2. IBUPROFEN [Concomitant]
  3. STEROIDS [Concomitant]
     Dosage: FORM: INJ

REACTIONS (4)
  - ALOPECIA [None]
  - BLISTER [None]
  - BLOOD PRESSURE INCREASED [None]
  - DRUG INEFFECTIVE [None]
